FAERS Safety Report 8513363-2 (Version None)
Quarter: 2012Q3

REPORT INFORMATION
  Report Type: 
  Country: None (occurrence: None)
  Receive Date: 20120716
  Receipt Date: 20120711
  Transmission Date: 20120928
  Serious: Yes (Other)
  Sender: FDA-Public Use
  Company Number: JP-AMGEN-JPNSP2012043735

PATIENT
  Age: 58 Year
  Sex: Female

DRUGS (1)
  1. RANMARK [Suspect]
     Indication: PRODUCT USED FOR UNKNOWN INDICATION
     Dosage: 120 MG, UNK

REACTIONS (1)
  - OSTEONECROSIS OF JAW [None]
